FAERS Safety Report 24919195 (Version 1)
Quarter: 2025Q1

REPORT INFORMATION
  Report Type: Report from Study
  Country: US (occurrence: US)
  Receive Date: 20250204
  Receipt Date: 20250204
  Transmission Date: 20250408
  Serious: Yes (Hospitalization, Other)
  Sender: AUROBINDO
  Company Number: US-AUROBINDO-AUR-APL-2025-004968

PATIENT
  Age: 74 Year
  Sex: Female
  Weight: 65.1 kg

DRUGS (6)
  1. BELINOSTAT [Suspect]
     Active Substance: BELINOSTAT
     Indication: Metastatic ocular melanoma
     Route: 042
     Dates: start: 20230130, end: 20230407
  2. BINIMETINIB [Suspect]
     Active Substance: BINIMETINIB
     Indication: Metastatic ocular melanoma
     Dosage: 45 MILLIGRAM, TWO TIMES A DAY
     Route: 048
     Dates: start: 20230130, end: 20230407
  3. HYDROCORTISONE [Concomitant]
     Active Substance: HYDROCORTISONE
     Indication: Product used for unknown indication
     Route: 065
  4. PROTONIX [Concomitant]
     Active Substance: PANTOPRAZOLE SODIUM
     Indication: Product used for unknown indication
     Route: 042
     Dates: start: 20230407
  5. PEPCID [Concomitant]
     Active Substance: FAMOTIDINE
     Indication: Product used for unknown indication
     Route: 042
     Dates: start: 20230407
  6. APIXABAN [Concomitant]
     Active Substance: APIXABAN
     Indication: Product used for unknown indication
     Route: 065
     Dates: start: 20230403

REACTIONS (3)
  - Haematemesis [Recovered/Resolved]
  - Mallory-Weiss syndrome [Recovered/Resolved]
  - Pulmonary embolism [Recovered/Resolved]

NARRATIVE: CASE EVENT DATE: 20230407
